FAERS Safety Report 17758866 (Version 1)
Quarter: 2020Q2

REPORT INFORMATION
  Report Type: Spontaneous
  Country: US (occurrence: US)
  Receive Date: 20200507
  Receipt Date: 20200507
  Transmission Date: 20200714
  Serious: Yes (Other)
  Sender: FDA-Public Use
  Company Number: US-ROCHE-2584492

PATIENT
  Age: 86 Year
  Sex: Female

DRUGS (15)
  1. FUROSEMIDE. [Concomitant]
     Active Substance: FUROSEMIDE
  2. ESTRADIOL. [Concomitant]
     Active Substance: ESTRADIOL
     Indication: HOT FLUSH
  3. FOLIC ACID. [Concomitant]
     Active Substance: FOLIC ACID
     Route: 065
  4. POTASSIUM [Concomitant]
     Active Substance: POTASSIUM
  5. SIMVASTATIN. [Concomitant]
     Active Substance: SIMVASTATIN
     Route: 065
  6. REMICADE [Concomitant]
     Active Substance: INFLIXIMAB
     Route: 065
  7. OMEPRAZOLE. [Concomitant]
     Active Substance: OMEPRAZOLE
  8. PREDNISONE. [Concomitant]
     Active Substance: PREDNISONE
  9. CITRACAL [CALCIUM CITRATE;COLECALCIFEROL] [Concomitant]
  10. CELEBREX [Suspect]
     Active Substance: CELECOXIB
     Indication: RHEUMATOID ARTHRITIS
     Route: 065
  11. LEVOTHYROXINE. [Concomitant]
     Active Substance: LEVOTHYROXINE
     Dosage: 88 MCG
     Route: 065
  12. SENOKOT [Concomitant]
     Active Substance: SENNOSIDES
  13. RITUXAN [Suspect]
     Active Substance: RITUXIMAB
     Indication: PRODUCT USED FOR UNKNOWN INDICATION
     Route: 041
  14. METHOTREXATE. [Concomitant]
     Active Substance: METHOTREXATE
     Dosage: 2.5MG TABLET-6 TABLETS EVERY THURSDAY
     Route: 065
  15. BENEFIBER [Concomitant]
     Active Substance: STARCH, WHEAT

REACTIONS (8)
  - Gait disturbance [Unknown]
  - Walking aid user [Unknown]
  - Product dose omission [Unknown]
  - Fall [Unknown]
  - Pain [Unknown]
  - Thrombosis [Recovering/Resolving]
  - Tendon rupture [Unknown]
  - Hypoacusis [Unknown]

NARRATIVE: CASE EVENT DATE: 20191022
